FAERS Safety Report 13889170 (Version 1)
Quarter: 2017Q3

REPORT INFORMATION
  Report Type: Spontaneous
  Country: US (occurrence: US)
  Receive Date: 20170816
  Receipt Date: 20170816
  Transmission Date: 20171127
  Serious: No
  Sender: FDA-Public Use
  Company Number: None

PATIENT
  Age: 58 Year

DRUGS (7)
  1. ONE A DAY CHEW VITAMINS [Concomitant]
  2. VITAMIN D [Concomitant]
     Active Substance: CHOLECALCIFEROL
  3. SYNTHROID [Concomitant]
     Active Substance: LEVOTHYROXINE SODIUM
  4. PROBIOTIC [Concomitant]
     Active Substance: PROBIOTICS NOS
  5. TRULICITY [Suspect]
     Active Substance: DULAGLUTIDE
     Indication: BLOOD GLUCOSE ABNORMAL
     Dosage: ?          QUANTITY:4 INJECTION(S);OTHER FREQUENCY:ONCE A WEEK;?
     Route: 058
  6. METEFORMIN [Concomitant]
  7. CYTOMEL [Concomitant]
     Active Substance: LIOTHYRONINE SODIUM

REACTIONS (10)
  - Abdominal distension [None]
  - Nervousness [None]
  - Pollakiuria [None]
  - Abdominal pain upper [None]
  - Gastrooesophageal reflux disease [None]
  - Nausea [None]
  - Dry mouth [None]
  - Palpitations [None]
  - Decreased appetite [None]
  - Dyspepsia [None]

NARRATIVE: CASE EVENT DATE: 20170731
